FAERS Safety Report 10253123 (Version 1)
Quarter: 2014Q2

REPORT INFORMATION
  Report Type: Spontaneous
  Country: US (occurrence: US)
  Receive Date: 20140623
  Receipt Date: 20140623
  Transmission Date: 20141212
  Serious: Yes (Other)
  Sender: FDA-Public Use
  Company Number: US-GLAXOSMITHKLINE-A1077682A

PATIENT
  Age: 55 Year
  Sex: Female

DRUGS (13)
  1. ADVAIR [Suspect]
     Indication: CHRONIC OBSTRUCTIVE PULMONARY DISEASE
     Dosage: 1PUFF TWICE PER DAY
     Route: 055
     Dates: start: 2010
  2. IBUPROFEN [Concomitant]
  3. TORADOL [Concomitant]
  4. OXYCODONE [Concomitant]
  5. METHADONE [Concomitant]
  6. PREDNISONE [Concomitant]
  7. FOSAMAX [Concomitant]
  8. PRO-AIR [Concomitant]
  9. METHYLPHENIDATE [Concomitant]
  10. SOMA [Concomitant]
  11. BUDESONIDE [Concomitant]
  12. LEVALBUTEROL NEBULIZER [Concomitant]
  13. PREDNISONE [Concomitant]
     Route: 048

REACTIONS (9)
  - Spinal compression fracture [Not Recovered/Not Resolved]
  - Disability [Unknown]
  - Rib fracture [Not Recovered/Not Resolved]
  - Movement disorder [Unknown]
  - Back pain [Not Recovered/Not Resolved]
  - Musculoskeletal chest pain [Not Recovered/Not Resolved]
  - Pain [Not Recovered/Not Resolved]
  - Dyspnoea [Unknown]
  - Drug dose omission [Unknown]
